FAERS Safety Report 15290444 (Version 1)
Quarter: 2018Q3

REPORT INFORMATION
  Report Type: Spontaneous
  Country: US (occurrence: US)
  Receive Date: 20180817
  Receipt Date: 20180817
  Transmission Date: 20181010
  Serious: No
  Sender: FDA-Public Use
  Company Number: US-009507513-1808USA006355

PATIENT
  Age: 25 Year
  Sex: Female
  Weight: 67.12 kg

DRUGS (1)
  1. NEXPLANON [Suspect]
     Active Substance: ETONOGESTREL
     Indication: CONTRACEPTION
     Dosage: 1 DF, UNK
     Route: 059
     Dates: start: 201603, end: 20180723

REACTIONS (5)
  - Metrorrhagia [Unknown]
  - Menstruation irregular [Unknown]
  - Mood altered [Unknown]
  - Vaginal haemorrhage [Unknown]
  - Vaginal discharge [Unknown]

NARRATIVE: CASE EVENT DATE: 2016
